FAERS Safety Report 7425992-8 (Version None)
Quarter: 2011Q2

REPORT INFORMATION
  Report Type: 
  Country: None (occurrence: None)
  Receive Date: 20110420
  Receipt Date: 20110412
  Transmission Date: 20111010
  Serious: No
  Sender: FDA-Public Use
  Company Number: US-ROXANE LABORATORIES, INC.-2011-RO-00519RO

PATIENT
  Age: 60 Year
  Sex: Female

DRUGS (3)
  1. OXCARBAZEPINE [Suspect]
     Dosage: 600 MG
     Route: 048
     Dates: start: 20110203
  2. TRAMADOL [Concomitant]
     Indication: BREAKTHROUGH PAIN
  3. OXCARBAZEPINE [Suspect]
     Indication: FACIAL NEURALGIA
     Dosage: 300 MG
     Route: 048

REACTIONS (1)
  - ALOPECIA [None]
